FAERS Safety Report 25089102 (Version 1)
Quarter: 2025Q1

REPORT INFORMATION
  Report Type: Report from Study
  Country: CN (occurrence: CN)
  Receive Date: 20250318
  Receipt Date: 20250318
  Transmission Date: 20250409
  Serious: Yes (Death)
  Sender: ROCHE
  Company Number: CN-ROCHE-10000233572

PATIENT
  Age: 82 Year
  Sex: Male

DRUGS (1)
  1. GLOFITAMAB [Suspect]
     Active Substance: GLOFITAMAB
     Indication: Diffuse large B-cell lymphoma
     Dosage: STRENGTH 10 MG (10 ML)/VIAL
     Route: 042
     Dates: start: 20240910

REACTIONS (1)
  - Death [Fatal]
